FAERS Safety Report 6396484-2 (Version None)
Quarter: 2009Q4

REPORT INFORMATION
  Report Type: 
  Country: None (occurrence: None)
  Receive Date: 20091012
  Receipt Date: 20090922
  Transmission Date: 20100525
  Serious: No
  Sender: FDA-Public Use
  Company Number: PR-BAYER-200932802NA

PATIENT
  Age: 36 Year
  Sex: Female

DRUGS (4)
  1. AVELOX [Suspect]
     Indication: SINUSITIS
     Route: 048
  2. VERAMIST [Concomitant]
     Indication: NASAL CONGESTION
  3. ADVAIR DISKUS 100/50 [Concomitant]
     Indication: ASTHMA
     Dosage: 250-50
  4. MUCINEX [Concomitant]
     Indication: NASAL CONGESTION

REACTIONS (2)
  - BRONCHITIS [None]
  - SINUSITIS [None]
